FAERS Safety Report 16419241 (Version 1)
Quarter: 2019Q2

REPORT INFORMATION
  Report Type: Spontaneous
  Country: FR (occurrence: FR)
  Receive Date: 20190612
  Receipt Date: 20190612
  Transmission Date: 20190711
  Serious: Yes (Other)
  Sender: FDA-Public Use
  Company Number: FR-ACCORD-132320

PATIENT
  Age: 48 Year
  Sex: Male
  Weight: 64 kg

DRUGS (21)
  1. CORDARONE [Suspect]
     Active Substance: AMIODARONE HYDROCHLORIDE
     Indication: ATRIAL FIBRILLATION
     Route: 042
     Dates: start: 20190209
  2. ZYVOXID [Suspect]
     Active Substance: LINEZOLID
     Indication: PNEUMONIA
     Dosage: STRENGTH: 100 MG/5 ML
     Route: 042
     Dates: start: 20190207, end: 20190213
  3. SPASFON LYOC [Concomitant]
     Active Substance: PHLOROGLUCINOL
     Dosage: STRENGTH: 80 MG
     Route: 048
     Dates: start: 20190208
  4. EUPRESSYL [Concomitant]
     Active Substance: URAPIDIL
     Dosage: STRENGTH: 60 MG
     Route: 048
     Dates: start: 20190209
  5. MEROPENEM. [Concomitant]
     Active Substance: MEROPENEM
     Dosage: LAST ADMINISTERED: 14-FEB-2019
     Route: 042
     Dates: start: 20190201
  6. CALCIPARINE [Concomitant]
     Active Substance: HEPARIN CALCIUM
     Dosage: STRENGTH: 12,500 IU / 0.5 ML
     Route: 058
     Dates: start: 20190206
  7. CORTANCYL [Concomitant]
     Active Substance: PREDNISONE
     Dosage: STRENGTH: 5 MG
     Route: 048
  8. BACTRIM [Concomitant]
     Active Substance: SULFAMETHOXAZOLE\TRIMETHOPRIM
     Route: 048
     Dates: start: 20190206
  9. ADVAGRAF [Suspect]
     Active Substance: TACROLIMUS
     Indication: RENAL TRANSPLANT
     Route: 048
  10. PANTOPRAZOLE [Concomitant]
     Active Substance: PANTOPRAZOLE
     Route: 042
     Dates: start: 20190206
  11. BISOPROLOL MYLAN [Concomitant]
     Active Substance: BISOPROLOL
     Route: 048
  12. FUROSEMIDE. [Concomitant]
     Active Substance: FUROSEMIDE
     Route: 048
     Dates: start: 20190211
  13. CELLCEPT [Suspect]
     Active Substance: MYCOPHENOLATE MOFETIL\MYCOPHENOLATE MOFETIL HYDROCHLORIDE
     Indication: RENAL TRANSPLANT
     Dosage: STRENGTH: 500 MG
     Route: 048
  14. AMLODIPINE [Concomitant]
     Active Substance: AMLODIPINE BESYLATE
     Route: 048
     Dates: start: 20190209
  15. ENTECAVIR. [Suspect]
     Active Substance: ENTECAVIR
     Indication: PRODUCT USED FOR UNKNOWN INDICATION
     Route: 048
  16. ROACTEMRA [Suspect]
     Active Substance: TOCILIZUMAB
     Indication: TRANSPLANT REJECTION
     Route: 042
     Dates: start: 20190206, end: 20190206
  17. PARACETAMOL [Concomitant]
     Active Substance: ACETAMINOPHEN
     Route: 048
     Dates: start: 20190212
  18. OXYNORMORO [Concomitant]
     Active Substance: OXYCODONE HYDROCHLORIDE
     Dosage: STRENGTH: 5 MG
     Route: 048
     Dates: start: 20190212
  19. PRIMPERAN [Concomitant]
     Active Substance: METOCLOPRAMIDE HYDROCHLORIDE
     Route: 042
     Dates: start: 20190206
  20. NEFOPAM [Concomitant]
     Active Substance: NEFOPAM
     Route: 042
     Dates: start: 20190206
  21. KARDEGIC [Concomitant]
     Active Substance: ASPIRIN DL-LYSINE
     Dosage: STRENGTH: 75 MG
     Route: 048
     Dates: start: 20190208

REACTIONS (1)
  - Neuropathy peripheral [Recovered/Resolved]

NARRATIVE: CASE EVENT DATE: 20190213
